FAERS Safety Report 7214376-3 (Version None)
Quarter: 2011Q1

REPORT INFORMATION
  Report Type: 
  Country: None (occurrence: None)
  Receive Date: 20110107
  Receipt Date: 20101228
  Transmission Date: 20110831
  Serious: Yes (Other)
  Sender: FDA-Public Use
  Company Number: PHHY2010US72452

PATIENT
  Sex: Female

DRUGS (1)
  1. RECLAST [Suspect]
     Dosage: UNK
     Dates: start: 20091005

REACTIONS (4)
  - PYREXIA [None]
  - CHILLS [None]
  - TOOTH DISORDER [None]
  - TOOTH EXTRACTION [None]
